FAERS Safety Report 6677807-3 (Version None)
Quarter: 2010Q2

REPORT INFORMATION
  Report Type: 
  Country: None (occurrence: None)
  Receive Date: 20100412
  Receipt Date: 20100319
  Transmission Date: 20101027
  Serious: No
  Sender: FDA-Public Use
  Company Number: US-ALEXION-A201000334

PATIENT
  Sex: Female

DRUGS (9)
  1. SOLIRIS [Suspect]
     Indication: PAROXYSMAL NOCTURNAL HAEMOGLOBINURIA
     Dosage: 600 MG, QW X4
     Route: 042
     Dates: start: 20091202
  2. SOLIRIS [Suspect]
     Dosage: 900 MG, Q2W
     Route: 042
     Dates: start: 20091230
  3. XELODA [Concomitant]
     Dosage: 2000 MG, QAM
     Route: 048
     Dates: start: 20090925
  4. XELODA [Concomitant]
     Dosage: 1500 MG, QPM
     Route: 048
     Dates: start: 20090925
  5. ZOFRAN [Concomitant]
     Dosage: 8 MG, BID
     Route: 048
     Dates: start: 20090731
  6. CALCIUM CARBONATE W/VITAMIN D NOS [Concomitant]
     Dosage: 1 TAB, QD
     Route: 048
     Dates: start: 20091015
  7. PRILOSEC [Concomitant]
     Dosage: 20 MG, QD
     Route: 048
     Dates: start: 20091015
  8. BENTYL [Concomitant]
     Dosage: 20 MG, Q6H, PRN
     Route: 048
     Dates: start: 20091015
  9. METOPROLOL TARTRATE [Concomitant]
     Dosage: 25 MG, BID
     Route: 048
     Dates: start: 20091015

REACTIONS (3)
  - HEADACHE [None]
  - OROPHARYNGEAL PAIN [None]
  - RHINORRHOEA [None]
